FAERS Safety Report 12626807 (Version 1)
Quarter: 2016Q3

REPORT INFORMATION
  Report Type: Report from Study
  Country: DE (occurrence: DE)
  Receive Date: 20160805
  Receipt Date: 20160805
  Transmission Date: 20161109
  Serious: Yes (Other)
  Sender: FDA-Public Use
  Company Number: DE-KADMON PHARMACEUTICALS, LLC-KAD201608-002888

PATIENT
  Age: 38 Year
  Sex: Male
  Weight: 61 kg

DRUGS (4)
  1. EXVIERA 250 MG COATED TABLET [Suspect]
     Active Substance: DASABUVIR SODIUM MONOHYDRATE
     Indication: CHRONIC HEPATITIS C
     Route: 048
     Dates: start: 20150715, end: 20151006
  2. RIBAVIRIN. [Suspect]
     Active Substance: RIBAVIRIN
     Indication: CHRONIC HEPATITIS C
     Dosage: COATED TABLET
     Route: 048
     Dates: start: 20150715, end: 20151006
  3. L-THYROXINE 50 MCG [Concomitant]
  4. VIEKIRAX 75 MG COATED TABLET [Suspect]
     Active Substance: OMBITASVIR\PARITAPREVIR\RITONAVIR
     Indication: CHRONIC HEPATITIS C
     Route: 048
     Dates: start: 20150715, end: 20151006

REACTIONS (1)
  - Panic disorder [Recovered/Resolved]

NARRATIVE: CASE EVENT DATE: 20150716
